FAERS Safety Report 18586036 (Version 1)
Quarter: 2020Q4

REPORT INFORMATION
  Report Type: Spontaneous
  Country: ES (occurrence: ES)
  Receive Date: 20201207
  Receipt Date: 20201207
  Transmission Date: 20210114
  Serious: Yes (Other)
  Sender: FDA-Public Use
  Company Number: ES-LEO PHARMA-333579

PATIENT
  Age: 73 Year
  Sex: Female

DRUGS (1)
  1. PICATO [Suspect]
     Active Substance: INGENOL MEBUTATE
     Indication: ACTINIC KERATOSIS
     Dosage: 150 MICROGRAMS / GRAM GEL, 3 SINGLE-DOSE TUBES OF 0.47 G?ONE APPLICATION
     Route: 061
     Dates: start: 20190826, end: 20190826

REACTIONS (3)
  - Burns second degree [Recovered/Resolved]
  - Squamous cell carcinoma [Recovered/Resolved]
  - Incorrect product administration duration [Unknown]

NARRATIVE: CASE EVENT DATE: 20190827
